FAERS Safety Report 11075712 (Version 11)
Quarter: 2015Q4

REPORT INFORMATION
  Report Type: Report from Study
  Country: US (occurrence: US)
  Receive Date: 20150429
  Receipt Date: 20151225
  Transmission Date: 20160304
  Serious: No
  Sender: FDA-Public Use
  Company Number: PHEH2015US007704

PATIENT
  Sex: Female
  Weight: 75.74 kg

DRUGS (1)
  1. GILENYA [Suspect]
     Active Substance: FINGOLIMOD HYDROCHLORIDE
     Indication: MULTIPLE SCLEROSIS
     Dosage: 0.5 MG, QD
     Route: 048
     Dates: start: 20141215

REACTIONS (7)
  - Feeling abnormal [Unknown]
  - Amnesia [Not Recovered/Not Resolved]
  - Mental disorder [Unknown]
  - Anxiety [Unknown]
  - JC virus test positive [Not Recovered/Not Resolved]
  - White blood cell count decreased [Unknown]
  - Memory impairment [Unknown]
